FAERS Safety Report 4684597-2 (Version None)
Quarter: 2005Q2

REPORT INFORMATION
  Report Type: 
  Country: None (occurrence: None)
  Receive Date: 20050531
  Receipt Date: 20050215
  Transmission Date: 20051028
  Serious: No
  Sender: FDA-Public Use
  Company Number: USA050290886

PATIENT
  Age: 29 Year
  Sex: Female

DRUGS (7)
  1. STRATTERA [Suspect]
     Indication: AFFECTIVE DISORDER
     Dosage: 40 MG DAY
     Dates: start: 20050212
  2. ZYPREXA [Suspect]
     Indication: BIPOLAR DISORDER
     Dosage: 30 MG DAY
  3. TOPAMAX [Concomitant]
  4. KLONOPIN [Concomitant]
  5. ORAL CONTRACEPTIVE NOS [Concomitant]
  6. PRILOSEC (OMEPRAZOLE RATIOPHARM) [Concomitant]
  7. ZYRTEC [Concomitant]

REACTIONS (4)
  - DISORIENTATION [None]
  - HEADACHE [None]
  - HYPERSOMNIA [None]
  - LOSS OF EMPLOYMENT [None]
